FAERS Safety Report 23075749 (Version 1)
Quarter: 2023Q4

REPORT INFORMATION
  Report Type: Spontaneous
  Country: PT (occurrence: PT)
  Receive Date: 20231017
  Receipt Date: 20231017
  Transmission Date: 20240109
  Serious: Yes (Life-Threatening, Hospitalization, Other)
  Sender: FDA-Public Use
  Company Number: PT-MLMSERVICE-20231003-4581124-1

PATIENT
  Age: 22 Year
  Sex: Female

DRUGS (5)
  1. SIMVASTATIN [Suspect]
     Active Substance: SIMVASTATIN
     Dosage: UNK
  2. METFORMIN [Suspect]
     Active Substance: METFORMIN HYDROCHLORIDE
     Dosage: UNK
  3. FENOFIBRATE [Suspect]
     Active Substance: FENOFIBRATE
     Dosage: UNK
  4. ESOMEPRAZOLE [Suspect]
     Active Substance: ESOMEPRAZOLE
     Dosage: UNK
  5. AMLODIPINE\PERINDOPRIL [Suspect]
     Active Substance: AMLODIPINE\PERINDOPRIL
     Dosage: UNK

REACTIONS (19)
  - Distributive shock [Unknown]
  - Sepsis [Recovering/Resolving]
  - Posterior reversible encephalopathy syndrome [Recovering/Resolving]
  - Hepatic cytolysis [Unknown]
  - Rhabdomyolysis [Unknown]
  - Peripheral motor neuropathy [Unknown]
  - Multiple organ dysfunction syndrome [Recovering/Resolving]
  - Poisoning deliberate [Unknown]
  - Tachycardia [Unknown]
  - Lactic acidosis [Unknown]
  - Respiratory failure [Unknown]
  - Renal failure [Unknown]
  - Myopathy [Unknown]
  - Peripheral sensory neuropathy [Unknown]
  - Septic shock [Unknown]
  - Quadriparesis [Unknown]
  - Toxicity to various agents [Unknown]
  - Hypotension [Unknown]
  - Hyperthermia malignant [Unknown]
